FAERS Safety Report 20466219 (Version 1)
Quarter: 2022Q1

REPORT INFORMATION
  Report Type: Spontaneous
  Country: US (occurrence: US)
  Receive Date: 20220213
  Receipt Date: 20220213
  Transmission Date: 20220423
  Serious: No
  Sender: FDA-Public Use
  Company Number: US-SANOFI-00962955

PATIENT
  Sex: Female

DRUGS (2)
  1. LANTUS SOLOSTAR [Suspect]
     Active Substance: INSULIN GLARGINE
     Dosage: DRUG STRUCTURE DOSAGE : 38 AM/ 50 PM DRUG INTERVAL DOSAGE : TWICE A DAY
  2. INSULIN GLARGINE [Suspect]
     Active Substance: INSULIN GLARGINE
     Dosage: UNK

REACTIONS (2)
  - Inappropriate schedule of product administration [Unknown]
  - Product use issue [Unknown]
